FAERS Safety Report 12859996 (Version 1)
Quarter: 2016Q3

REPORT INFORMATION
  Report Type: Spontaneous
  Country: US (occurrence: US)
  Receive Date: 20160930
  Receipt Date: 20160930
  Transmission Date: 20161109
  Serious: No
  Sender: FDA-Public Use
  Company Number: None

PATIENT
  Sex: Female

DRUGS (1)
  1. CREST PRO-HEALTH CLINICAL [Suspect]
     Active Substance: CETYLPYRIDINIUM CHLORIDE

REACTIONS (6)
  - Oral mucosal blistering [None]
  - Migraine [None]
  - Oral discomfort [None]
  - Oral pain [None]
  - Salivary gland disorder [None]
  - Tenderness [None]
